FAERS Safety Report 25586024 (Version 2)
Quarter: 2025Q3

REPORT INFORMATION
  Report Type: Spontaneous
  Country: RU (occurrence: RU)
  Receive Date: 20250721
  Receipt Date: 20250725
  Transmission Date: 20251020
  Serious: Yes (Other)
  Sender: Karo Pharma
  Company Number: RU-Karo Pharma-2180875

PATIENT
  Age: 28 Year
  Sex: Male

DRUGS (1)
  1. TERBINAFINE [Suspect]
     Active Substance: TERBINAFINE
     Indication: Fungal infection

REACTIONS (2)
  - Acute generalised exanthematous pustulosis [Unknown]
  - Intentional product misuse [Unknown]
